FAERS Safety Report 19511259 (Version 2)
Quarter: 2022Q1

REPORT INFORMATION
  Report Type: Spontaneous
  Country: NL (occurrence: NL)
  Receive Date: 20210709
  Receipt Date: 20220222
  Transmission Date: 20220423
  Serious: Yes (Hospitalization)
  Sender: FDA-Public Use
  Company Number: NL-SUN PHARMACEUTICAL INDUSTRIES LTD-2021RR-303689

PATIENT
  Age: 73 Year
  Sex: Female
  Weight: 50.4 kg

DRUGS (9)
  1. ATORVASTATIN [Interacting]
     Active Substance: ATORVASTATIN
     Indication: Acute myocardial infarction
     Dosage: 40 MILLIGRAM, BID, TABLET, 40 MG (MILLIGRAM), 2 DD 40 MG
     Route: 065
     Dates: start: 202103
  2. ATORVASTATIN [Interacting]
     Active Substance: ATORVASTATIN
     Dosage: 20 MILLIGRAM, BID, WHICH WAS HALVED ON 10-6-21 BY THE GP
     Route: 065
     Dates: start: 20210610
  3. METRONIDAZOLE [Interacting]
     Active Substance: METRONIDAZOLE
     Indication: Dientamoeba infection
     Dosage: 500 MILLIGRAM, TID, 3X PER DAY 1 CUP
     Route: 065
     Dates: start: 20210604, end: 20210607
  4. NITROGLYCERINE SPRAY SUBLING. 0,4MG/DO / NITROLINGUAL OROMUCOSALE S... [Concomitant]
     Indication: Product used for unknown indication
     Dosage: SPRAY, 0,4 MG/DOSIS (MILLIGRAM PER DOSIS) ()
     Route: 065
  5. PANTOPRAZOL TABLET MSR 40MG / Brand name not specifiedPANTOPRAZOL T... [Concomitant]
     Indication: Product used for unknown indication
     Dosage: MAAGSAPRESISTENTE TABLET, 40 MG (MILLIGRAM) ()
     Route: 065
  6. ACETYLSALICYLZUUR TABLET  80MG / Brand name not specifiedACETYLSALI... [Concomitant]
     Indication: Product used for unknown indication
     Dosage: TABLET, 80 MG (MILLIGRAM) ()
     Route: 065
  7. TICAGRELOR TABLET 90MG / Brand name not specifiedTICAGRELOR TABLET ... [Concomitant]
     Indication: Product used for unknown indication
     Dosage: TABLET, 90 MG (MILLIGRAM) ()
     Route: 065
  8. METOPROLOL TABLET MGA  50MG (SUCCINAAT) / Brand name not specifiedM... [Concomitant]
     Indication: Product used for unknown indication
     Dosage: TABLET MET GEREGULEERDE AFGIFTE, 50 MG (MILLIGRAM) ()
     Route: 065
  9. PERINDOPRIL TABLET 2MG (ERBUMINE) / Brand name not specifiedPERINDO... [Concomitant]
     Indication: Product used for unknown indication
     Dosage: TABLET, 2 MG (MILLIGRAM) ()
     Route: 065

REACTIONS (2)
  - Acute kidney injury [Recovering/Resolving]
  - Rhabdomyolysis [Recovering/Resolving]
